FAERS Safety Report 5421445-7 (Version None)
Quarter: 2007Q3

REPORT INFORMATION
  Report Type: 
  Country: None (occurrence: None)
  Receive Date: 20070821
  Receipt Date: 20070815
  Transmission Date: 20080115
  Serious: Yes (Disabling)
  Sender: FDA-Public Use
  Company Number: DE-BOEHRINGER INGELHEIM PHARMACEUTICALS, INC.-2007-DE-04806DE

PATIENT
  Age: 73 Year
  Sex: Male

DRUGS (9)
  1. AGGRENOX [Suspect]
     Indication: CEREBROVASCULAR ACCIDENT
     Route: 048
  2. TRENTAL [Concomitant]
     Route: 042
  3. NOVONORM [Concomitant]
  4. ISDN RATIOPHARM [Concomitant]
  5. GODAMED [Concomitant]
  6. OMNIC OCAS [Concomitant]
  7. INDAPAMIDE [Concomitant]
  8. TENORMIN [Concomitant]
  9. BRONCHICUM TROPFEN [Concomitant]

REACTIONS (2)
  - AMNESIA [None]
  - DISORIENTATION [None]
